FAERS Safety Report 10716887 (Version 5)
Quarter: 2015Q2

REPORT INFORMATION
  Report Type: Other
  Country: IT (occurrence: IT)
  Receive Date: 20150116
  Receipt Date: 20150423
  Transmission Date: 20150821
  Serious: Yes (Death, Hospitalization)
  Sender: FDA-Public Use
  Company Number: IT-MYLANLABS-2015M1000821

PATIENT

DRUGS (3)
  1. TYVERB [Suspect]
     Active Substance: LAPATINIB
     Indication: BREAST CANCER
     Dosage: 1250 MG, QD
     Route: 048
     Dates: start: 20141119
  2. DEXAMETHASONE. [Concomitant]
     Active Substance: DEXAMETHASONE
     Indication: PRODUCT USED FOR UNKNOWN INDICATION
     Dosage: 16 MG, UNK
     Route: 048
     Dates: start: 20141104
  3. CAPECITABINE. [Suspect]
     Active Substance: CAPECITABINE
     Indication: BREAST CANCER
     Dosage: 2500 MG/M2, CYCLE
     Route: 048
     Dates: start: 20141119

REACTIONS (5)
  - Brain abscess [Fatal]
  - Fungal infection [Fatal]
  - Diarrhoea [Unknown]
  - Pneumonia fungal [Fatal]
  - Thymus disorder [Unknown]

NARRATIVE: CASE EVENT DATE: 201412
